FAERS Safety Report 19515645 (Version 1)
Quarter: 2021Q3

REPORT INFORMATION
  Report Type: Spontaneous
  Country: AT (occurrence: AT)
  Receive Date: 20210709
  Receipt Date: 20210709
  Transmission Date: 20211014
  Serious: Yes (Other)
  Sender: FDA-Public Use
  Company Number: AT-ELI_LILLY_AND_COMPANY-AT202106014051

PATIENT
  Age: 69 Year
  Sex: Female

DRUGS (31)
  1. ZYPREXA [Suspect]
     Active Substance: OLANZAPINE
     Indication: PRODUCT USED FOR UNKNOWN INDICATION
     Dosage: 10 MG, UNKNOWN
     Route: 065
     Dates: start: 20210401, end: 20210513
  2. SPRAVATO [Suspect]
     Active Substance: ESKETAMINE
     Dosage: 56 MG, UNKNOWN
     Route: 065
     Dates: start: 20210427, end: 20210427
  3. ZOLDEM [Concomitant]
     Active Substance: ZOLPIDEM TARTRATE
     Indication: PRODUCT USED FOR UNKNOWN INDICATION
     Dosage: 10 MG
     Dates: start: 20210401, end: 20210504
  4. SERTRALINE [Suspect]
     Active Substance: SERTRALINE HYDROCHLORIDE
     Dosage: 150 MG, UNKNOWN
     Route: 065
     Dates: start: 20210413, end: 20210512
  5. SERTRALINE [Suspect]
     Active Substance: SERTRALINE HYDROCHLORIDE
     Dosage: 100 MG, UNKNOWN
     Route: 065
     Dates: start: 20210513, end: 20210526
  6. SEROQUEL XR [Suspect]
     Active Substance: QUETIAPINE FUMARATE
     Indication: PRODUCT USED FOR UNKNOWN INDICATION
     Dosage: 150 MG, UNKNOWN
     Route: 065
     Dates: start: 20210405, end: 20210415
  7. TRITTICO [Suspect]
     Active Substance: TRAZODONE HYDROCHLORIDE
     Indication: PRODUCT USED FOR UNKNOWN INDICATION
     Dosage: 150 MG, UNKNOWN
     Route: 065
     Dates: start: 20210401, end: 20210427
  8. SPRAVATO [Suspect]
     Active Substance: ESKETAMINE
     Dosage: 28 MG, UNKNOWN
     Route: 065
     Dates: start: 20210412, end: 20210412
  9. ATORVALAN [Concomitant]
     Active Substance: ATORVASTATIN CALCIUM
     Indication: PRODUCT USED FOR UNKNOWN INDICATION
     Dosage: 20 MG
     Dates: start: 20210401, end: 20210526
  10. SEROQUEL XR [Suspect]
     Active Substance: QUETIAPINE FUMARATE
     Dosage: 50 MG, UNKNOWN
     Route: 065
     Dates: start: 20210514, end: 20210526
  11. TRITTICO [Suspect]
     Active Substance: TRAZODONE HYDROCHLORIDE
     Dosage: 100 MG, UNKNOWN
     Route: 065
     Dates: start: 20210428, end: 20210526
  12. SPRAVATO [Suspect]
     Active Substance: ESKETAMINE
     Dosage: 56 MG, UNKNOWN
     Route: 065
     Dates: start: 20210429, end: 20210429
  13. QUILONORM [LITHIUM CARBONATE] [Suspect]
     Active Substance: LITHIUM CARBONATE
     Dosage: 225 MG, UNKNOWN
     Route: 065
     Dates: start: 20210412, end: 20210414
  14. OLEOVIT D3 [Concomitant]
     Active Substance: CHOLECALCIFEROL
     Indication: PRODUCT USED FOR UNKNOWN INDICATION
     Dosage: 30 DROPS, WEEKLY (1/W)
     Dates: start: 20210401, end: 20210518
  15. IVABRADINE [Concomitant]
     Active Substance: IVABRADINE
     Indication: PRODUCT USED FOR UNKNOWN INDICATION
     Dates: start: 20210401, end: 20210526
  16. SPRAVATO [Suspect]
     Active Substance: ESKETAMINE
     Dosage: 56 MG, UNKNOWN
     Route: 065
     Dates: start: 20210423, end: 20210423
  17. SPRAVATO [Suspect]
     Active Substance: ESKETAMINE
     Dosage: 84 MG, UNKNOWN
     Route: 065
     Dates: start: 20210504, end: 20210504
  18. SERTRALINE [Suspect]
     Active Substance: SERTRALINE HYDROCHLORIDE
     Dosage: 200 MG, UNKNOWN
     Route: 065
     Dates: start: 20210402, end: 20210412
  19. SPRAVATO [Suspect]
     Active Substance: ESKETAMINE
     Dosage: 56 MG, UNKNOWN
     Route: 065
     Dates: start: 20210420, end: 20210420
  20. PREGABALINE [Suspect]
     Active Substance: PREGABALIN
     Dosage: 100 MG, UNKNOWN
     Route: 065
     Dates: start: 20210423, end: 20210503
  21. SPRAVATO [Suspect]
     Active Substance: ESKETAMINE
     Dosage: 28 MG, UNKNOWN
     Route: 065
     Dates: start: 20210414, end: 20210414
  22. QUILONORM [LITHIUM CARBONATE] [Suspect]
     Active Substance: LITHIUM CARBONATE
     Indication: PRODUCT USED FOR UNKNOWN INDICATION
     Dosage: 450 MG, UNKNOWN
     Route: 065
     Dates: start: 20210405, end: 20210407
  23. QUILONORM [LITHIUM CARBONATE] [Suspect]
     Active Substance: LITHIUM CARBONATE
     Dosage: 450 MG, UNKNOWN
     Route: 065
     Dates: start: 20210415, end: 20210526
  24. INHIXA [Concomitant]
     Active Substance: ENOXAPARIN SODIUM
     Indication: PRODUCT USED FOR UNKNOWN INDICATION
     Dates: start: 20210401, end: 20210518
  25. ZYPREXA [Suspect]
     Active Substance: OLANZAPINE
     Dosage: 7.5 MG, UNKNOWN
     Route: 065
     Dates: start: 20210514, end: 20210526
  26. SERTRALINE [Suspect]
     Active Substance: SERTRALINE HYDROCHLORIDE
     Indication: PRODUCT USED FOR UNKNOWN INDICATION
     Dosage: 150 MG, UNKNOWN
     Route: 065
     Dates: start: 20210401, end: 20210401
  27. SEROQUEL XR [Suspect]
     Active Substance: QUETIAPINE FUMARATE
     Dosage: 150 MG, UNKNOWN
     Route: 065
     Dates: start: 20210416, end: 20210422
  28. SEROQUEL XR [Suspect]
     Active Substance: QUETIAPINE FUMARATE
     Dosage: 50 MG, UNKNOWN
     Route: 065
     Dates: start: 20210423, end: 20210510
  29. PREGABALINE [Suspect]
     Active Substance: PREGABALIN
     Indication: PRODUCT USED FOR UNKNOWN INDICATION
     Dosage: 50 MG, UNKNOWN
     Route: 065
     Dates: start: 20210419, end: 20210422
  30. SPRAVATO [Suspect]
     Active Substance: ESKETAMINE
     Indication: MAJOR DEPRESSION
     Dosage: 28 MG, UNKNOWN
     Route: 045
     Dates: start: 20210408, end: 20210408
  31. ZOLDEM [Concomitant]
     Active Substance: ZOLPIDEM TARTRATE
     Dosage: 10 MG
     Dates: start: 20210507, end: 20210526

REACTIONS (1)
  - Oedema [Recovered/Resolved]

NARRATIVE: CASE EVENT DATE: 20210422
